FAERS Safety Report 8068796-8 (Version None)
Quarter: 2012Q1

REPORT INFORMATION
  Report Type: 
  Country: None (occurrence: None)
  Receive Date: 20120124
  Receipt Date: 20110617
  Transmission Date: 20120608
  Serious: Yes (Hospitalization)
  Sender: FDA-Public Use
  Company Number: US-AMGEN-USASP2011015414

PATIENT
  Age: 33 Year
  Sex: Male

DRUGS (1)
  1. ENBREL [Suspect]
     Indication: ANKYLOSING SPONDYLITIS
     Dosage: 50 MG, 2 TIMES/WK
     Dates: start: 20040504

REACTIONS (5)
  - PNEUMONIA [None]
  - PAIN [None]
  - NEPHROLITHIASIS [None]
  - APPENDICITIS PERFORATED [None]
  - LOCALISED INFECTION [None]
